FAERS Safety Report 5429090-4 (Version None)
Quarter: 2007Q3

REPORT INFORMATION
  Report Type: 
  Country: None (occurrence: None)
  Receive Date: 20070824
  Receipt Date: 20070724
  Transmission Date: 20080115
  Serious: Yes (Other)
  Sender: FDA-Public Use
  Company Number: 2007AP000894

PATIENT
  Age: 64 Year
  Sex: Female

DRUGS (5)
  1. TERBINAFINE HCL [Suspect]
     Indication: ONYCHOMYCOSIS
     Dosage: 250 MG;PO
     Route: 048
     Dates: start: 20070618, end: 20070709
  2. BENDROFLUAZIDE (BENDROFLUMETHIAZIDE) [Concomitant]
  3. LISINOPRIL [Concomitant]
  4. ACETAMINOPHEN [Concomitant]
  5. SIMVASTATIN [Concomitant]

REACTIONS (1)
  - VASCULITIS [None]
